FAERS Safety Report 19694484 (Version 1)
Quarter: 2021Q3

REPORT INFORMATION
  Report Type: Spontaneous
  Country: US (occurrence: US)
  Receive Date: 20210813
  Receipt Date: 20210813
  Transmission Date: 20211014
  Serious: No
  Sender: FDA-Public Use
  Company Number: US-BRISTOL-MYERS SQUIBB COMPANY-BMS-2021-079709

PATIENT
  Age: 66 Year
  Sex: Male
  Weight: 70.76 kg

DRUGS (4)
  1. NIVOLUMAB [Concomitant]
     Active Substance: NIVOLUMAB
     Dosage: 240 MILLIGRAM
     Route: 042
     Dates: start: 20210527, end: 20210527
  2. NIVOLUMAB [Concomitant]
     Active Substance: NIVOLUMAB
     Indication: MESOTHELIOMA
     Dosage: 240 MILLIGRAM
     Route: 042
     Dates: start: 20210514, end: 20210514
  3. APIXABAN [Suspect]
     Active Substance: APIXABAN
     Indication: CEREBROVASCULAR ACCIDENT PROPHYLAXIS
     Dosage: 5 MILLIGRAM
     Route: 048
     Dates: start: 20210705
  4. NIVOLUMAB [Concomitant]
     Active Substance: NIVOLUMAB
     Dosage: 240 MILLIGRAM
     Route: 042
     Dates: start: 20210610, end: 20210610

REACTIONS (1)
  - Haematuria [Unknown]

NARRATIVE: CASE EVENT DATE: 20210720
